FAERS Safety Report 9263280 (Version 1)
Quarter: 2013Q2

REPORT INFORMATION
  Report Type: Spontaneous
  Country: US (occurrence: None)
  Receive Date: 20130429
  Receipt Date: 20130429
  Transmission Date: 20140414
  Serious: Yes (Hospitalization)
  Sender: FDA-Public Use
  Company Number: None

PATIENT
  Age: 36 Year
  Sex: Male
  Weight: 112.04 kg

DRUGS (1)
  1. LURASIDONE [Suspect]
     Indication: SCHIZOPHRENIA
     Dosage: 160 MG PO DAILY
     Route: 048

REACTIONS (1)
  - Schizophrenia [None]
